FAERS Safety Report 19645423 (Version 1)
Quarter: 2021Q3

REPORT INFORMATION
  Report Type: Report from Study
  Country: BE (occurrence: BE)
  Receive Date: 20210802
  Receipt Date: 20210802
  Transmission Date: 20211014
  Serious: Yes (Other)
  Sender: FDA-Public Use
  Company Number: BE-TEVA-2021-BE-1873865

PATIENT
  Age: 56 Year
  Sex: Female

DRUGS (1)
  1. COPAXONE [Suspect]
     Active Substance: GLATIRAMER ACETATE
     Indication: MULTIPLE SCLEROSIS

REACTIONS (11)
  - Tachycardia [Unknown]
  - Hot flush [Unknown]
  - Chest discomfort [Unknown]
  - Skin reaction [Unknown]
  - Immediate post-injection reaction [Unknown]
  - Pain [Recovered/Resolved]
  - Erythema [Unknown]
  - Swelling face [Unknown]
  - Hypersomnia [Recovered/Resolved]
  - Feeling hot [Unknown]
  - Periorbital swelling [Recovered/Resolved]

NARRATIVE: CASE EVENT DATE: 20210111
